FAERS Safety Report 8719021 (Version 2)
Quarter: 2013Q4

REPORT INFORMATION
  Report Type: Spontaneous
  Country: US (occurrence: US)
  Receive Date: 20120813
  Receipt Date: 20131101
  Transmission Date: 20140711
  Serious: No
  Sender: FDA-Public Use
  Company Number: US-009507513-1208USA003325

PATIENT
  Age: 19 Year
  Sex: Female
  Weight: 58.96 kg

DRUGS (2)
  1. NUVARING [Suspect]
     Indication: CONTRACEPTION
     Dosage: 1 DF, QM
     Route: 067
     Dates: start: 201206
  2. IBUPROFEN [Concomitant]
     Indication: HEADACHE
     Dosage: UNK, PRN

REACTIONS (3)
  - Inappropriate schedule of drug administration [Unknown]
  - Menstruation delayed [Unknown]
  - Unintended pregnancy [Unknown]
